FAERS Safety Report 6839014-0 (Version None)
Quarter: 2010Q3

REPORT INFORMATION
  Report Type: 
  Country: None (occurrence: None)
  Receive Date: 20100713
  Receipt Date: 20081121
  Transmission Date: 20110219
  Serious: No
  Sender: FDA-Public Use
  Company Number: US-PFIZER INC-2007040535

PATIENT
  Sex: Female
  Weight: 71.8 kg

DRUGS (6)
  1. CHANTIX [Suspect]
     Indication: SMOKING CESSATION THERAPY
     Route: 048
     Dates: start: 20070102
  2. ATENOLOL [Concomitant]
  3. LEXAPRO [Concomitant]
  4. XANAX [Concomitant]
  5. VITAMINS [Concomitant]
  6. ALL OTHER THERAPEUTIC PRODUCTS [Concomitant]

REACTIONS (9)
  - ABDOMINAL PAIN [None]
  - ABNORMAL DREAMS [None]
  - CONSTIPATION [None]
  - DYSPEPSIA [None]
  - HEADACHE [None]
  - IRRITABLE BOWEL SYNDROME [None]
  - NAUSEA [None]
  - SLEEP DISORDER [None]
  - WEIGHT DECREASED [None]
